FAERS Safety Report 10216341 (Version 1)
Quarter: 2014Q2

REPORT INFORMATION
  Report Type: Spontaneous
  Country: US (occurrence: US)
  Receive Date: 20140604
  Receipt Date: 20140604
  Transmission Date: 20141212
  Serious: Yes (Hospitalization)
  Sender: FDA-Public Use
  Company Number: US-BAYER-2014-079174

PATIENT
  Age: 14 Year
  Sex: Female
  Weight: 51.7 kg

DRUGS (9)
  1. BAYER ASPIRIN REGIMEN ADULT LOW STRENGTH [Suspect]
     Indication: ANTIPLATELET THERAPY
     Dosage: 1 DF, QD
     Route: 048
     Dates: start: 20120224, end: 20120525
  2. VORICONAZOLE [Suspect]
     Indication: ASPERGILLUS INFECTION
     Dosage: 350 MG, BID
     Route: 048
     Dates: start: 20120208, end: 20120430
  3. ENOXAPARIN [Suspect]
     Indication: ANTICOAGULANT THERAPY
     Dosage: 32 MG, QD
     Route: 058
     Dates: start: 20120224, end: 20120525
  4. PREDNISONE [Suspect]
     Indication: VASCULITIS
     Dosage: 20 MG, QD
     Dates: start: 20120101
  5. PREDNISONE [Suspect]
     Indication: VASCULITIS
     Dosage: 10MG IN MORNING AND 20 MG IN THE EVENING
  6. METHOTREXAT [METHOTREXATE] [Suspect]
     Indication: VASCULITIS
     Dosage: 25 MG, OW
     Dates: start: 20120427
  7. LEUCOVORINE [Concomitant]
     Indication: NEUTROPENIA
     Dosage: UNK
     Dates: start: 20120427
  8. LANSOPRAZOLE [Concomitant]
     Indication: PROPHYLAXIS
     Dosage: UNK
     Dates: start: 20120204
  9. CLARITHROMYCIN [Concomitant]
     Indication: MYCOBACTERIAL INFECTION

REACTIONS (6)
  - Joint injury [Recovered/Resolved]
  - Contusion [None]
  - Injection site bruising [None]
  - Arthralgia [None]
  - Off label use [None]
  - Pneumatosis intestinalis [Not Recovered/Not Resolved]
